FAERS Safety Report 12117854 (Version 1)
Quarter: 2016Q1

REPORT INFORMATION
  Report Type: Spontaneous
  Country: CA (occurrence: CA)
  Receive Date: 20160226
  Receipt Date: 20160226
  Transmission Date: 20160526
  Serious: Yes (Other)
  Sender: FDA-Public Use
  Company Number: CA-ROCHE-1630803

PATIENT
  Age: 56 Year
  Sex: Female

DRUGS (3)
  1. ACTEMRA [Suspect]
     Active Substance: TOCILIZUMAB
     Indication: RHEUMATOID ARTHRITIS
     Route: 065
  2. RITUXAN [Suspect]
     Active Substance: RITUXIMAB
     Indication: RHEUMATOID ARTHRITIS
     Route: 065
  3. PREDNISONE. [Concomitant]
     Active Substance: PREDNISONE

REACTIONS (15)
  - Contusion [Unknown]
  - Rash [Unknown]
  - Hypersensitivity [Unknown]
  - Drug ineffective [Unknown]
  - Haemorrhage [Unknown]
  - Swelling [Unknown]
  - Pruritus generalised [Unknown]
  - Oedema peripheral [Unknown]
  - Injection site bruising [Unknown]
  - Bone disorder [Unknown]
  - Injection site erythema [Unknown]
  - Dysphagia [Unknown]
  - Injection site hypersensitivity [Unknown]
  - Abdominal discomfort [Unknown]
  - Blood pressure increased [Unknown]
